FAERS Safety Report 17876666 (Version 1)
Quarter: 2020Q2

REPORT INFORMATION
  Report Type: Report from Study
  Country: US (occurrence: US)
  Receive Date: 20200609
  Receipt Date: 20200609
  Transmission Date: 20200714
  Serious: Yes (Death)
  Sender: FDA-Public Use
  Company Number: US-PFIZER INC-2020219484

PATIENT

DRUGS (37)
  1. METHOTREXATE SODIUM. [Suspect]
     Active Substance: METHOTREXATE SODIUM
     Dosage: DOSE BY AGE, IN WEEK 38
     Route: 037
  2. PEGASPARGASE [Suspect]
     Active Substance: PEGASPARGASE
     Indication: ACUTE LYMPHOCYTIC LEUKAEMIA RECURRENT
     Dosage: 2500 UNITS/M2, IN WEEKS 1-4
     Route: 030
  3. ETOPOSIDE. [Suspect]
     Active Substance: ETOPOSIDE
     Indication: ACUTE LYMPHOCYTIC LEUKAEMIA RECURRENT
     Dosage: 100 MG/M2/DAY, FOR 5 DAYS IN WEEK 6
     Route: 042
  4. PEGASPARGASE [Suspect]
     Active Substance: PEGASPARGASE
     Dosage: 2500 INTERNATIONAL UNITS/M2, IN WEEKS 28, 30
     Route: 030
  5. DEXAMETHASONE. [Suspect]
     Active Substance: DEXAMETHASONE
     Indication: ACUTE LYMPHOCYTIC LEUKAEMIA RECURRENT
     Dosage: 10 MG/M2/DAY, DIVIDED (BID), DAYS 1-7, 15-21 (IN WEEKS 28 AND 30)
     Route: 048
  6. L-ASPARAGINASE [Suspect]
     Active Substance: ASPARAGINASE
     Indication: ACUTE LYMPHOCYTIC LEUKAEMIA RECURRENT
     Dosage: 6000 INTERNATIONAL UNITS/M2, IN WEEKS 11 AND 12
     Route: 030
  7. VINCRISTINE SULFATE. [Suspect]
     Active Substance: VINCRISTINE SULFATE
     Dosage: UNKNOWN DOSE (ARM A OR B), IN WEEKS 28, 29, 30
     Route: 042
  8. CYTARABINE. [Suspect]
     Active Substance: CYTARABINE
     Dosage: 3000 MG/M2, Q12 HRS FOR 4 DOSES, IN WEEKS 11 AND 12
     Route: 042
  9. METHOTREXATE SODIUM. [Suspect]
     Active Substance: METHOTREXATE SODIUM
     Dosage: 5 GRAMS/M2 OVER 24 HOURS, IN WEEKS 36, 54
     Route: 042
  10. PREDNISONE. [Suspect]
     Active Substance: PREDNISONE
     Indication: ACUTE LYMPHOCYTIC LEUKAEMIA RECURRENT
     Dosage: 40 MG/M2/DAY, DIVIDED THREE TIMES DAILY (TID) FROM WEEK 1 TO WEEK 4 FOR 28 DAYS
     Route: 048
  11. LEUCOVORIN. [Suspect]
     Active Substance: LEUCOVORIN
     Dosage: 15 MG/M2 IV/PO Q6 HRS FOR 3 DOSES AT MINIMUM STARTING AT HOUR 42, IN WEEKS 36, 54
  12. VINCRISTINE SULFATE. [Suspect]
     Active Substance: VINCRISTINE SULFATE
     Dosage: UNKNOWN DOSE (ARM A OR B), IN WEEKS 36, 37, 54, 55
     Route: 042
  13. DOXORUBICIN HCL [Suspect]
     Active Substance: DOXORUBICIN HYDROCHLORIDE
     Indication: ACUTE LYMPHOCYTIC LEUKAEMIA RECURRENT
     Dosage: 60 MG/M2, IN WEEK 1
     Route: 042
  14. METHOTREXATE SODIUM. [Suspect]
     Active Substance: METHOTREXATE SODIUM
     Indication: ACUTE LYMPHOCYTIC LEUKAEMIA RECURRENT
     Dosage: DOSE BY AGE, ON DAYS 15, 29 (WEEKS 3 AND 5)
     Route: 037
  15. METHOTREXATE SODIUM. [Suspect]
     Active Substance: METHOTREXATE SODIUM
     Dosage: DOSE BY AGE, IN WEEKS 6 AND 9
     Route: 037
  16. METHOTREXATE SODIUM. [Suspect]
     Active Substance: METHOTREXATE SODIUM
     Dosage: DOSE BY AGE, IN WEEKS 17, 20, 23
     Route: 037
  17. METHOTREXATE SODIUM. [Suspect]
     Active Substance: METHOTREXATE SODIUM
     Dosage: DOSE BY AGE, IN WEEKS 28, 31
     Route: 037
  18. G-CSF [Suspect]
     Active Substance: GRANULOCYTE COLONY-STIMULATING FACTOR NOS
     Indication: ACUTE LYMPHOCYTIC LEUKAEMIA RECURRENT
     Dosage: 5 MCG/KG/DAY, SUBCUTANEOUS (SUBQ) OR IV, WEEK 6
  19. MERCAPTOPURINE. [Suspect]
     Active Substance: MERCAPTOPURINE
     Indication: ACUTE LYMPHOCYTIC LEUKAEMIA RECURRENT
     Dosage: 50 MG/M2, DAILY FOR 5 DAYS, IN WEEKS 18, 21, 24, 27
     Route: 048
  20. CYCLOPHOSPHAMIDE. [Suspect]
     Active Substance: CYCLOPHOSPHAMIDE
     Dosage: 500 MG/M2, IN WEEKS 16, 19, 22, 25
     Route: 042
  21. PEGASPARGASE [Suspect]
     Active Substance: PEGASPARGASE
     Dosage: 2500 INTERNATIONAL UNITS/M2, IN WEEKS 33, 52
     Route: 030
  22. G-CSF [Suspect]
     Active Substance: GRANULOCYTE COLONY-STIMULATING FACTOR NOS
     Dosage: 5 MCG/KG SUBQ/IV DAILY IN WEEK 12
  23. LEUCOVORIN. [Suspect]
     Active Substance: LEUCOVORIN
     Dosage: 15 MG/M2 IV/PO Q6 HRS FOR 3 DOSES AT MINIMUM STARTING AT HOUR 42, IN WEEKS 18, 21, 24, 27
  24. VINCRISTINE SULFATE. [Suspect]
     Active Substance: VINCRISTINE SULFATE
     Indication: ACUTE LYMPHOCYTIC LEUKAEMIA RECURRENT
     Dosage: UNKNOWN DOSE (ARM A OR B) IN WEEKS 1-4;
     Route: 042
  25. DOXORUBICIN HCL [Suspect]
     Active Substance: DOXORUBICIN HYDROCHLORIDE
     Dosage: 25 MG/M2, IN WEEKS 28, 29, 30
     Route: 042
  26. METHOTREXATE SODIUM. [Suspect]
     Active Substance: METHOTREXATE SODIUM
     Dosage: 5 GRAMS/M2 OVER 24 HOURS, IN WEEKS 18, 21, 24, 27
     Route: 042
  27. LEUCOVORIN. [Suspect]
     Active Substance: LEUCOVORIN
     Indication: ACUTE LYMPHOCYTIC LEUKAEMIA RECURRENT
     Dosage: 15 MG/M2 IV/PO EVERY (Q) 6 HOURS (HRS) FOR 3 DOSES AT MINIMUM, STARTING AT HOUR 42 IN WEEK 6
  28. MERCAPTOPURINE. [Suspect]
     Active Substance: MERCAPTOPURINE
     Dosage: 50 MG/M2, DAILY FOR 5 DOSES, IN WEEKS 36 AND 54
     Route: 048
  29. CYCLOPHOSPHAMIDE. [Suspect]
     Active Substance: CYCLOPHOSPHAMIDE
     Indication: ACUTE LYMPHOCYTIC LEUKAEMIA RECURRENT
     Dosage: 440 MG/M2/DAY, FOR 5 DAYS IN WEEK 6
     Route: 042
  30. CYCLOPHOSPHAMIDE. [Suspect]
     Active Substance: CYCLOPHOSPHAMIDE
     Dosage: 500 MG/M2, IN WEEKS 37, 55
     Route: 042
  31. VINCRISTINE SULFATE. [Suspect]
     Active Substance: VINCRISTINE SULFATE
     Dosage: UNKNOWN DOSE (ARM A OR B), IN WEEKS 18, 21, 24, 27
     Route: 042
  32. METHOTREXATE SODIUM. [Suspect]
     Active Substance: METHOTREXATE SODIUM
     Dosage: 5 GRAMS/M2, OVER 24 HOURS IN WEEK 9
     Route: 042
  33. G-CSF [Suspect]
     Active Substance: GRANULOCYTE COLONY-STIMULATING FACTOR NOS
     Dosage: 5 MCG/KG/DAY SUBQ/IV DAILY, IN WEEKS 34, 52
  34. ETOPOSIDE. [Suspect]
     Active Substance: ETOPOSIDE
     Dosage: 300 MG/M2, IN WEEKS 16, 19, 22, 25
     Route: 042
  35. ETOPOSIDE. [Suspect]
     Active Substance: ETOPOSIDE
     Dosage: 300 MG/M2, IN WEEKS 37, 55
     Route: 042
  36. CYTARABINE. [Suspect]
     Active Substance: CYTARABINE
     Dosage: 3000 MG/M2 Q12 HRS FOR 4 DOSES, IN WEEKS 33 AND 51
     Route: 042
  37. CYTARABINE. [Suspect]
     Active Substance: CYTARABINE
     Indication: ACUTE LYMPHOCYTIC LEUKAEMIA RECURRENT
     Dosage: DOSE BY AGE, ON DAY 1 ONLY
     Route: 037

REACTIONS (1)
  - Escherichia infection [Fatal]
